FAERS Safety Report 17007849 (Version 1)
Quarter: 2019Q4

REPORT INFORMATION
  Report Type: Spontaneous
  Country: CA (occurrence: CA)
  Receive Date: 20191108
  Receipt Date: 20191108
  Transmission Date: 20200122
  Serious: Yes (Other)
  Sender: FDA-Public Use
  Company Number: CA-SA-2019SA303196

PATIENT
  Age: 34 Year
  Sex: Female

DRUGS (5)
  1. PREDNISONE. [Concomitant]
     Active Substance: PREDNISONE
     Indication: LEPROSY
  2. RIFAMPICIN [Suspect]
     Active Substance: RIFAMPIN
     Indication: LEPROSY
  3. DAPSONE. [Suspect]
     Active Substance: DAPSONE
     Indication: LEPROSY
  4. INFLUENZA VACCINE [Suspect]
     Active Substance: INFLUENZA VIRUS VACCINE
     Indication: PROPHYLAXIS
     Route: 030
  5. OFLOXACIN. [Suspect]
     Active Substance: OFLOXACIN
     Indication: LEPROSY

REACTIONS (8)
  - Methaemoglobinaemia [Recovering/Resolving]
  - Swelling [Recovering/Resolving]
  - Type 2 lepra reaction [Recovering/Resolving]
  - Papule [Recovering/Resolving]
  - Skin plaque [Recovering/Resolving]
  - Skin mass [Recovering/Resolving]
  - Upper respiratory tract infection [Recovering/Resolving]
  - Skin lesion [Recovering/Resolving]
